FAERS Safety Report 18310060 (Version 2)
Quarter: 2020Q4

REPORT INFORMATION
  Report Type: Spontaneous
  Country: US (occurrence: US)
  Receive Date: 20200924
  Receipt Date: 20201229
  Transmission Date: 20210113
  Serious: No
  Sender: FDA-Public Use
  Company Number: US-PFIZER INC-2020325626

PATIENT
  Age: 63 Year
  Sex: Female

DRUGS (3)
  1. METHOTREXATE. [Concomitant]
     Active Substance: METHOTREXATE
     Dosage: 7 DF, WEEKLY (7 TABLETS ONCE WEEKLY, DOSE INCREASED BY 1 TABLET ABOUT 2 WEEKS AGO)
  2. METHOTREXATE. [Concomitant]
     Active Substance: METHOTREXATE
     Dosage: 6 DF, WEEKLY (6 TABLET ONCE WEEKLY)
  3. XELJANZ XR [Suspect]
     Active Substance: TOFACITINIB CITRATE
     Indication: RHEUMATOID ARTHRITIS
     Dosage: 11 MG, 1X/DAY
     Route: 048
     Dates: start: 20200812

REACTIONS (4)
  - Myalgia [Unknown]
  - Depressed mood [Unknown]
  - Pain [Unknown]
  - Tendon pain [Unknown]
